FAERS Safety Report 4450270-9 (Version None)
Quarter: 2004Q3

REPORT INFORMATION
  Report Type: 
  Country: None (occurrence: None)
  Receive Date: 20040914
  Receipt Date: 20040901
  Transmission Date: 20050211
  Serious: Yes (Other)
  Sender: FDA-Public Use
  Company Number: 2004231745JP

PATIENT
  Age: 68 Year
  Sex: Male

DRUGS (2)
  1. SOLU-MEDROL [Suspect]
     Dosage: 1000 MG, QD, IV
     Route: 042
  2. DELTA-CORTEF [Suspect]
     Dosage: SEE IMAGE
     Route: 048

REACTIONS (2)
  - GASTRIC CANCER [None]
  - IMMUNOSUPPRESSION [None]
